FAERS Safety Report 4894134-5 (Version None)
Quarter: 2006Q1

REPORT INFORMATION
  Report Type: 
  Country: None (occurrence: None)
  Receive Date: 20060127
  Receipt Date: 20050816
  Transmission Date: 20060701
  Serious: No
  Sender: FDA-Public Use
  Company Number: US-GLAXOSMITHKLINE-A0570463A

PATIENT
  Sex: Female

DRUGS (3)
  1. WELLBUTRIN [Suspect]
     Route: 048
  2. NICOTINE [Suspect]
     Dosage: 1PAT UNKNOWN
     Route: 062
  3. XANAX [Concomitant]

REACTIONS (1)
  - HYPERTENSION [None]
